FAERS Safety Report 8911746 (Version 1)
Quarter: 2012Q4

REPORT INFORMATION
  Report Type: 
  Country: US (occurrence: US)
  Receive Date: 20121116
  Receipt Date: 20121116
  Transmission Date: 20130627
  Serious: No
  Sender: FDA-Public Use
  Company Number: US-MYLANLABS-2012S1011649

PATIENT
  Age: 81 Year
  Sex: Male
  Weight: 92.99 kg

DRUGS (11)
  1. AMLODIPINE BESYLATE TABLETS [Suspect]
     Indication: HYPERTENSION
     Route: 048
     Dates: start: 201201, end: 20120505
  2. ISRADIPINE [Suspect]
     Indication: HYPERTENSION
     Route: 048
     Dates: start: 20120505, end: 20120607
  3. DYNACIRC [Concomitant]
     Indication: HYPERTENSION
     Dates: end: 20120229
  4. HYDROCHLOROTHIAZIDE [Concomitant]
  5. METFORMIN [Concomitant]
  6. POTASSIUM [Concomitant]
  7. LIPITOR [Concomitant]
  8. ASPIRIN [Concomitant]
  9. MULTIVITAMIN [Concomitant]
  10. CALCIUM + VITAMIN D /01483701/ [Concomitant]
  11. GLUCOSAMINE + CHONDROITIN /01430901/ [Concomitant]

REACTIONS (2)
  - Oedema peripheral [Recovered/Resolved]
  - Skin exfoliation [Not Recovered/Not Resolved]
